FAERS Safety Report 17400336 (Version 1)
Quarter: 2020Q1

REPORT INFORMATION
  Report Type: Spontaneous
  Country: US (occurrence: US)
  Receive Date: 20200126
  Receipt Date: 20200126
  Transmission Date: 20200409
  Serious: Yes (Hospitalization)
  Sender: FDA-Public Use
  Company Number: None

PATIENT
  Sex: Male
  Weight: 18.1 kg

DRUGS (4)
  1. MERCAPTOPURINE (755) [Suspect]
     Active Substance: MERCAPTOPURINE
     Dates: end: 20200125
  2. METHOTREXATE. [Suspect]
     Active Substance: METHOTREXATE
     Dates: end: 20200123
  3. VINCRISTINE [Suspect]
     Active Substance: VINCRISTINE
     Dates: end: 20200123
  4. PREDNISONE. [Suspect]
     Active Substance: PREDNISONE
     Dates: end: 20200124

REACTIONS (2)
  - Rheumatoid arthritis [None]
  - Bacterial infection [None]

NARRATIVE: CASE EVENT DATE: 20200125
